FAERS Safety Report 6240880-0 (Version None)
Quarter: 2009Q2

REPORT INFORMATION
  Report Type: 
  Country: None (occurrence: None)
  Receive Date: 20090623
  Receipt Date: 20090611
  Transmission Date: 20091009
  Serious: Yes (Disabling, Other)
  Sender: FDA-Public Use
  Company Number: US-PFIZER INC-2008150784

PATIENT
  Age: 52 Year

DRUGS (3)
  1. VIAGRA [Suspect]
     Indication: ERECTILE DYSFUNCTION
     Dosage: UNK
     Route: 048
     Dates: start: 20020801, end: 20070201
  2. GENTAK [Concomitant]
     Dosage: 3 MG, UNK
     Dates: start: 20051226
  3. TARKA [Concomitant]
     Dosage: 2/18MG
     Dates: start: 20060220

REACTIONS (1)
  - OPTIC ISCHAEMIC NEUROPATHY [None]
